FAERS Safety Report 4853001-3 (Version None)
Quarter: 2005Q4

REPORT INFORMATION
  Report Type: 
  Country: None (occurrence: None)
  Receive Date: 20051212
  Receipt Date: 20051124
  Transmission Date: 20060501
  Serious: Yes (Other)
  Sender: FDA-Public Use
  Company Number: 13036

PATIENT
  Age: 38 Year
  Sex: Male

DRUGS (2)
  1. METHOTREXATE MAYNE [Suspect]
  2. IMUREL [Suspect]

REACTIONS (1)
  - GASTROINTESTINAL CARCINOMA [None]
